APPROVED DRUG PRODUCT: LACOSAMIDE
Active Ingredient: LACOSAMIDE
Strength: 10MG/ML
Dosage Form/Route: SOLUTION;ORAL
Application: A206355 | Product #001 | TE Code: AA
Applicant: APOTEX INC
Approved: Sep 26, 2022 | RLD: No | RS: No | Type: RX